FAERS Safety Report 20764577 (Version 2)
Quarter: 2022Q2

REPORT INFORMATION
  Report Type: Spontaneous
  Country: SK (occurrence: SK)
  Receive Date: 20220428
  Receipt Date: 20220531
  Transmission Date: 20220720
  Serious: Yes (Other)
  Sender: FDA-Public Use
  Company Number: SK-LUNDBECK-DKLU3047212

PATIENT
  Age: 40 Week
  Sex: Male
  Weight: 3.77 kg

DRUGS (2)
  1. BRINTELLIX [Suspect]
     Active Substance: VORTIOXETINE HYDROBROMIDE
     Indication: Depression
     Dosage: 10 MILLIGRAM, BID
     Route: 064
  2. PYRIDOXINE [Concomitant]
     Active Substance: PYRIDOXINE
     Indication: Product used for unknown indication
     Dosage: UNK
     Route: 065

REACTIONS (8)
  - Neonatal asphyxia [Unknown]
  - Skin swelling [Unknown]
  - Jaundice neonatal [Unknown]
  - Diastasis recti abdominis [Unknown]
  - Heart rate increased [Unknown]
  - Respiration abnormal [Unknown]
  - Inappropriate schedule of product administration [Unknown]
  - Foetal exposure during pregnancy [Unknown]

NARRATIVE: CASE EVENT DATE: 20220101
